FAERS Safety Report 9044272 (Version 1)
Quarter: 2013Q1

REPORT INFORMATION
  Report Type: Report from Study
  Country: US (occurrence: US)
  Receive Date: 20130131
  Receipt Date: 20130131
  Transmission Date: 20140127
  Serious: No
  Sender: FDA-Public Use
  Company Number: US-ABBOTT-12P-163-0988760-00

PATIENT
  Age: 22 Year
  Sex: Female

DRUGS (4)
  1. HUMIRA [Suspect]
     Indication: RHEUMATOID ARTHRITIS
     Route: 058
     Dates: start: 20120612
  2. CELEXA [Concomitant]
     Indication: ANXIETY
     Route: 048
  3. CELEXA [Concomitant]
     Indication: HEADACHE
  4. YAZ [Concomitant]
     Indication: CONTRACEPTION
     Dosage: DAILY
     Route: 048

REACTIONS (2)
  - Incorrect dose administered [Recovered/Resolved]
  - Injection site haemorrhage [Recovered/Resolved]
